FAERS Safety Report 19646762 (Version 1)
Quarter: 2021Q3

REPORT INFORMATION
  Report Type: Spontaneous
  Country: ES (occurrence: ES)
  Receive Date: 20210802
  Receipt Date: 20210802
  Transmission Date: 20211014
  Serious: Yes (Hospitalization, Other)
  Sender: FDA-Public Use
  Company Number: ES-PFIZER INC-202100913656

PATIENT
  Age: 56 Year
  Sex: Female

DRUGS (17)
  1. MYCOPHENOLATE MOFETIL. [Suspect]
     Active Substance: MYCOPHENOLATE MOFETIL
     Indication: IMMUNOSUPPRESSANT DRUG THERAPY
  2. ENVARSUS XR [Suspect]
     Active Substance: TACROLIMUS
     Indication: IMMUNOSUPPRESSANT DRUG THERAPY
  3. THYMOGLOBULIN [Suspect]
     Active Substance: LAPINE T-LYMPHOCYTE IMMUNE GLOBULIN
     Indication: RENAL TRANSPLANT
     Route: 042
  4. MYCOPHENOLATE MOFETIL. [Suspect]
     Active Substance: MYCOPHENOLATE MOFETIL
     Indication: RENAL TRANSPLANT
  5. EMPAGLIFLOZIN [Suspect]
     Active Substance: EMPAGLIFLOZIN
     Indication: DIABETES MELLITUS
     Route: 065
  6. INSULIN [Concomitant]
     Active Substance: INSULIN NOS
     Indication: DIABETES MELLITUS
     Route: 065
  7. METHYLPREDNISOLONE SODIUM SUCCINATE. [Suspect]
     Active Substance: METHYLPREDNISOLONE SODIUM SUCCINATE
     Indication: RENAL TRANSPLANT
  8. AMPHOTERICIN B, LIPOSOME [Suspect]
     Active Substance: AMPHOTERICIN B
     Indication: CANDIDA INFECTION
     Dosage: UNK
  9. AMPHOTERICIN B, LIPOSOME [Suspect]
     Active Substance: AMPHOTERICIN B
     Indication: EMPHYSEMATOUS PYELONEPHRITIS
  10. CASPOFUNGIN [Suspect]
     Active Substance: CASPOFUNGIN
     Indication: CANDIDA INFECTION
     Dosage: UNK
     Route: 042
  11. METHYLPREDNISOLONE SODIUM SUCCINATE. [Suspect]
     Active Substance: METHYLPREDNISOLONE SODIUM SUCCINATE
     Indication: HISTOLOGY ABNORMAL
     Dosage: UNK
     Route: 065
  12. MEROPENEM. [Concomitant]
     Active Substance: MEROPENEM
     Dosage: UNK
     Route: 065
  13. ENVARSUS XR [Suspect]
     Active Substance: TACROLIMUS
     Indication: RENAL TRANSPLANT
  14. PREDNISONE. [Suspect]
     Active Substance: PREDNISONE
     Indication: RENAL TRANSPLANT
     Dosage: UNK
  15. THYMOGLOBULIN [Suspect]
     Active Substance: LAPINE T-LYMPHOCYTE IMMUNE GLOBULIN
     Indication: HISTOLOGY ABNORMAL
  16. PIPERACILLIN AND TAZOBACTAM [Concomitant]
     Active Substance: PIPERACILLIN SODIUM\TAZOBACTAM SODIUM
     Indication: EVIDENCE BASED TREATMENT
     Route: 065
  17. PREDNISONE. [Suspect]
     Active Substance: PREDNISONE
     Indication: IMMUNOSUPPRESSANT DRUG THERAPY

REACTIONS (17)
  - Vesicoureteric reflux [Unknown]
  - Emphysematous pyelonephritis [Recovered/Resolved]
  - Therapy non-responder [Unknown]
  - Pyelonephritis fungal [Recovering/Resolving]
  - Systemic candida [Recovered/Resolved]
  - Hypotension [Unknown]
  - Oliguria [Unknown]
  - Candida infection [Recovered/Resolved]
  - Candida sepsis [Recovered/Resolved]
  - Urinary tract candidiasis [Recovered/Resolved]
  - Renal impairment [Unknown]
  - Drug ineffective [Recovered/Resolved]
  - Urinary tract infection enterococcal [Recovered/Resolved]
  - Perinephric abscess [Recovered/Resolved]
  - Coagulopathy [Recovered/Resolved]
  - Urinary tract infection [Recovered/Resolved]
  - Septic shock [Recovered/Resolved]
